FAERS Safety Report 7076159-7 (Version None)
Quarter: 2010Q4

REPORT INFORMATION
  Report Type: 
  Country: None (occurrence: None)
  Receive Date: 20101101
  Receipt Date: 20101014
  Transmission Date: 20110411
  Serious: Yes (Hospitalization)
  Sender: FDA-Public Use
  Company Number: US-BAYER-200933497NA

PATIENT
  Sex: Female
  Weight: 99 kg

DRUGS (21)
  1. YAZ [Suspect]
     Indication: CONTRACEPTION
     Route: 048
     Dates: start: 20080301, end: 20080601
  2. YASMIN [Suspect]
     Indication: CONTRACEPTION
     Route: 048
  3. BACTRIN [Concomitant]
     Indication: CELLULITIS
     Dates: start: 20080601
  4. PHENERGAN [Concomitant]
     Indication: GASTROOESOPHAGEAL REFLUX DISEASE
  5. PREVACID [Concomitant]
     Indication: GASTROOESOPHAGEAL REFLUX DISEASE
  6. NEEVO [Concomitant]
     Dates: start: 20081101
  7. NEEVO [Concomitant]
     Dates: start: 20080801
  8. TANDEN F [Concomitant]
     Dates: start: 20080801
  9. TANDEN F [Concomitant]
     Dates: start: 20081101
  10. ALPRAZOLAM [Concomitant]
     Dates: start: 20081201
  11. SERTRALINE HYDROCHLORIDE [Concomitant]
     Dates: start: 20090101
  12. PROPOXPHEN [Concomitant]
     Dates: start: 20090101
  13. PROMETHAZINE [Concomitant]
     Dates: start: 20090101
  14. CIPROFLOXACIN [Concomitant]
     Dates: start: 20090101
  15. METRONIDAZOLE [Concomitant]
     Dates: start: 20090101
  16. GYNAZOLE-1 [Concomitant]
     Dates: start: 20090201
  17. PREDNISONE [Concomitant]
     Dates: start: 20091201
  18. ACETAMINOPHEN [Concomitant]
     Indication: HEADACHE
  19. NYQUIL [Concomitant]
     Indication: NASOPHARYNGITIS
  20. BENADRYL [Concomitant]
     Indication: MULTIPLE ALLERGIES
  21. TUMS [Concomitant]
     Indication: DYSPEPSIA

REACTIONS (2)
  - PREGNANCY ON CONTRACEPTIVE [None]
  - THROMBOSIS [None]
